FAERS Safety Report 12059851 (Version 2)
Quarter: 2016Q1

REPORT INFORMATION
  Report Type: Report from Study
  Country: AU (occurrence: AU)
  Receive Date: 20160210
  Receipt Date: 20160318
  Transmission Date: 20160526
  Serious: Yes (Hospitalization)
  Sender: FDA-Public Use
  Company Number: AU-UCBSA-103049

PATIENT
  Age: 75 Year
  Sex: Female
  Weight: 53 kg

DRUGS (9)
  1. FOLIC ACID. [Concomitant]
     Active Substance: FOLIC ACID
     Indication: VITAMIN SUPPLEMENTATION
     Dosage: 5 MG, ONCE DAILY (QD)
     Route: 048
     Dates: start: 200202
  2. METHOTREXATE [Concomitant]
     Active Substance: METHOTREXATE
     Indication: RHEUMATOID ARTHRITIS
     Route: 048
     Dates: start: 200202
  3. CENOVIS MEGA B [Concomitant]
     Indication: VITAMIN SUPPLEMENTATION
     Dosage: 1 TAB; QD
     Route: 048
     Dates: start: 2010, end: 20131114
  4. LATANOPROST/TIMOLOL [Concomitant]
     Active Substance: LATANOPROST\TIMOLOL
     Indication: GLAUCOMA
     Dosage: 12 DROPS
     Dates: start: 200608, end: 20131114
  5. *ADALIMUMAB [Suspect]
     Active Substance: ADALIMUMAB
     Indication: RHEUMATOID ARTHRITIS
     Dosage: 12 DOSES
     Route: 058
     Dates: start: 20130607
  6. PANADOL [Concomitant]
     Active Substance: ACETAMINOPHEN
     Indication: RHEUMATOID ARTHRITIS
     Dosage: 2 TABS MIDI
     Route: 048
     Dates: start: 2011, end: 20131118
  7. KRILL OIL [Concomitant]
     Active Substance: DIETARY SUPPLEMENT
     Indication: NUTRITIONAL SUPPLEMENTATION
     Dosage: 2000 MG, ONCE DAILY (QD)
     Route: 048
     Dates: start: 201202, end: 20131114
  8. GLUCOSAMINE [Concomitant]
     Active Substance: GLUCOSAMINE
     Indication: VITAMIN SUPPLEMENTATION
     Dosage: 1 TAB; QD
     Route: 048
     Dates: start: 2011, end: 20131114
  9. STRONTIUM RANELATE [Concomitant]
     Active Substance: STRONTIUM RANELATE
     Indication: OSTEOPOROSIS
     Dosage: 2 G, ONCE DAILY (QD)
     Route: 048
     Dates: start: 200909

REACTIONS (1)
  - Pneumonia [Recovered/Resolved]

NARRATIVE: CASE EVENT DATE: 20131108
